FAERS Safety Report 5146253-6 (Version None)
Quarter: 2006Q4

REPORT INFORMATION
  Report Type: 
  Country: None (occurrence: None)
  Receive Date: 20061102
  Receipt Date: 20061024
  Transmission Date: 20070319
  Serious: Yes (Hospitalization, Other)
  Sender: FDA-Public Use
  Company Number: HQWYE247227SEP06

PATIENT
  Age: 55 Year
  Sex: Male

DRUGS (7)
  1. RAPAMUNE [Suspect]
     Indication: PROPHYLAXIS AGAINST TRANSPLANT REJECTION
     Dosage: SEE IMAGE
     Route: 048
     Dates: start: 20060822, end: 20060822
  2. RAPAMUNE [Suspect]
     Indication: PROPHYLAXIS AGAINST TRANSPLANT REJECTION
     Dosage: SEE IMAGE
     Route: 048
     Dates: start: 20060823, end: 20061004
  3. TACROLIMUS (TACROLIMUS,) [Suspect]
     Dosage: SEE IMAGE
     Route: 048
     Dates: start: 20060905, end: 20060921
  4. TACROLIMUS (TACROLIMUS,) [Suspect]
     Dosage: SEE IMAGE
     Route: 048
     Dates: start: 20060922, end: 20060925
  5. TACROLIMUS (TACROLIMUS,) [Suspect]
     Dosage: SEE IMAGE
     Route: 048
     Dates: start: 20061014
  6. SULFAMETHOXAZOLE + TRIMETHOPRIM [Concomitant]
  7. RANITIDINE [Concomitant]

REACTIONS (4)
  - COMPLICATIONS OF TRANSPLANTED KIDNEY [None]
  - GRAFT DYSFUNCTION [None]
  - HAEMODIALYSIS [None]
  - NEUROTOXICITY [None]
